FAERS Safety Report 8465035 (Version 4)
Quarter: 2012Q4

REPORT INFORMATION
  Report Type: Report from Study
  Country: ES (occurrence: ES)
  Receive Date: 20120319
  Receipt Date: 20121226
  Transmission Date: 20130627
  Serious: Yes (Hospitalization)
  Sender: FDA-Public Use
  Company Number: ES-JNJFOC-20120304891

PATIENT
  Age: 44 None
  Sex: Male
  Weight: 80 kg

DRUGS (3)
  1. PALIPERIDONE PALMITATE [Suspect]
     Indication: SCHIZOPHRENIA
     Route: 065
     Dates: start: 20120215
  2. RISPERIDONE [Concomitant]
     Indication: SCHIZOPHRENIA
     Route: 065
     Dates: start: 20120120, end: 20120221
  3. AKINETON RETARD [Concomitant]
     Indication: EXTRAPYRAMIDAL DISORDER
     Route: 065

REACTIONS (2)
  - Psychotic disorder [Recovered/Resolved]
  - Cellulitis [Unknown]
